FAERS Safety Report 7000445-X (Version None)
Quarter: 2010Q3

REPORT INFORMATION
  Report Type: 
  Country: None (occurrence: None)
  Receive Date: 20100920
  Receipt Date: 20100412
  Transmission Date: 20110219
  Serious: No
  Sender: FDA-Public Use
  Company Number: US-ASTRAZENECA-2010SE16322

PATIENT
  Sex: Male
  Weight: 70.3 kg

DRUGS (8)
  1. SEROQUEL [Suspect]
     Indication: BIPOLAR DISORDER
     Route: 048
  2. MERIPEX [Concomitant]
  3. MECAZAPINE [Concomitant]
  4. LISINOPRIL [Concomitant]
  5. CARBOMAZAPINE [Concomitant]
  6. LOVASTATIN [Concomitant]
  7. DOXAZOSIN MESYLATE [Concomitant]
  8. OMEPRAZOLE [Concomitant]

REACTIONS (5)
  - FALL [None]
  - FOOT FRACTURE [None]
  - GAIT DISTURBANCE [None]
  - HYPOAESTHESIA [None]
  - MUSCULOSKELETAL STIFFNESS [None]
